FAERS Safety Report 15578812 (Version 1)
Quarter: 2018Q4

REPORT INFORMATION
  Report Type: Spontaneous
  Country: JP (occurrence: JP)
  Receive Date: 20181102
  Receipt Date: 20181102
  Transmission Date: 20190205
  Serious: Yes (Other)
  Sender: FDA-Public Use
  Company Number: JP-MYLANLABS-2018M1082179

PATIENT
  Age: 66 Year
  Sex: Male

DRUGS (1)
  1. CANDESARTAN. [Suspect]
     Active Substance: CANDESARTAN
     Indication: HYPERTENSION
     Route: 065

REACTIONS (1)
  - Pemphigus [Recovering/Resolving]
